FAERS Safety Report 23617285 (Version 1)
Quarter: 2024Q1

REPORT INFORMATION
  Report Type: Spontaneous
  Country: GB (occurrence: GB)
  Receive Date: 20240311
  Receipt Date: 20240311
  Transmission Date: 20240410
  Serious: Yes (Other)
  Sender: FDA-Public Use
  Company Number: GB-BRISTOL-MYERS SQUIBB COMPANY-2024-036135

PATIENT
  Age: 66 Year
  Sex: Female

DRUGS (2)
  1. NIVOLUMAB [Suspect]
     Active Substance: NIVOLUMAB
     Indication: Malignant melanoma stage III
     Dates: start: 20230106
  2. IPILIMUMAB [Suspect]
     Active Substance: IPILIMUMAB
     Indication: Malignant melanoma stage III
     Dates: start: 20230106

REACTIONS (5)
  - Immune-mediated dermatitis [Recovering/Resolving]
  - VIth nerve paralysis [Recovered/Resolved]
  - Immune-mediated uveitis [Recovering/Resolving]
  - Immune-mediated thyroiditis [Unknown]
  - Vitiligo [Unknown]

NARRATIVE: CASE EVENT DATE: 20230113
